FAERS Safety Report 24903299 (Version 1)
Quarter: 2025Q1

REPORT INFORMATION
  Report Type: Spontaneous
  Country: US (occurrence: US)
  Receive Date: 20250130
  Receipt Date: 20250130
  Transmission Date: 20250409
  Serious: No
  Sender: ROCHE
  Company Number: US-ROCHE-10000191119

PATIENT
  Sex: Female

DRUGS (5)
  1. VABYSMO [Suspect]
     Active Substance: FARICIMAB-SVOA
     Indication: Eye disorder
     Route: 050
     Dates: start: 2024
  2. EYLEA [Concomitant]
     Active Substance: AFLIBERCEPT
     Indication: Eye disorder
     Route: 050
     Dates: start: 2024
  3. MINERALS\VITAMINS [Concomitant]
     Active Substance: MINERALS\VITAMINS
     Dosage: TAKES IN THE MORNING
     Route: 048
  4. KLONOPIN [Concomitant]
     Active Substance: CLONAZEPAM
     Dosage: TAKES AT BEDTIME AS NEEDED
     Route: 048
  5. ASPIRIN [Concomitant]
     Active Substance: ASPIRIN
     Dosage: TAKES TWICE A DAY
     Route: 048

REACTIONS (1)
  - Hallucination, visual [Not Recovered/Not Resolved]
